FAERS Safety Report 6920908-2 (Version None)
Quarter: 2010Q3

REPORT INFORMATION
  Report Type: 
  Country: None (occurrence: None)
  Receive Date: 20100812
  Receipt Date: 20100802
  Transmission Date: 20110219
  Serious: Yes (Hospitalization)
  Sender: FDA-Public Use
  Company Number: JP-SANOFI-AVENTIS-2010SA037408

PATIENT
  Age: 70 Year
  Sex: Male
  Weight: 52.9 kg

DRUGS (15)
  1. ELPLAT [Suspect]
     Indication: GASTRIC CANCER
     Route: 041
     Dates: start: 20100510, end: 20100510
  2. ELPLAT [Suspect]
     Route: 041
     Dates: start: 20100621, end: 20100621
  3. TS-1 [Suspect]
     Indication: GASTRIC CANCER
     Route: 048
     Dates: start: 20100510
  4. ALLOPURINOL [Concomitant]
     Indication: HYPERURICAEMIA
     Route: 048
     Dates: start: 20090901
  5. ASPIRIN [Concomitant]
     Indication: CEREBRAL INFARCTION
     Route: 048
     Dates: start: 19990101
  6. TRICHLORMETHIAZIDE [Concomitant]
     Indication: HYPERTENSION
     Route: 048
     Dates: start: 20090901
  7. TENORMIN [Concomitant]
     Indication: HYPERTENSION
     Route: 048
     Dates: start: 19990101
  8. LIMAPROST [Concomitant]
     Indication: ARTERIOSCLEROSIS OBLITERANS
     Route: 048
     Dates: start: 19990101
  9. CILOSTAZOL [Concomitant]
     Indication: ARTERIOSCLEROSIS OBLITERANS
     Route: 048
     Dates: start: 19990101
  10. MIGLITOL [Concomitant]
     Indication: DIABETES MELLITUS
     Route: 048
     Dates: start: 20090901
  11. ADALAT CC [Concomitant]
     Indication: HYPERTENSION
     Route: 048
     Dates: start: 19990101
  12. DOXAZOSIN MESYLATE [Concomitant]
     Indication: HYPERTENSION
     Route: 048
     Dates: start: 19990101
  13. VALSARTAN [Concomitant]
     Indication: HYPERTENSION
     Route: 048
     Dates: start: 19990101
  14. FERROMIA [Concomitant]
     Indication: ANAEMIA
     Route: 048
     Dates: start: 20100101
  15. MAGLAX [Concomitant]
     Route: 048
     Dates: start: 20100601

REACTIONS (1)
  - ADAMS-STOKES SYNDROME [None]
